FAERS Safety Report 6037657-8 (Version None)
Quarter: 2009Q1

REPORT INFORMATION
  Report Type: 
  Country: None (occurrence: None)
  Receive Date: 20090114
  Receipt Date: 20090109
  Transmission Date: 20090719
  Serious: No
  Sender: FDA-Public Use
  Company Number: US-B.I. PHARMACEUTICALS,INC./RIDGEFIELD-2009-BP-00262BP

PATIENT
  Sex: Female

DRUGS (3)
  1. MIRAPEX [Suspect]
     Indication: RESTLESS LEGS SYNDROME
     Dosage: .25MG
     Route: 048
     Dates: start: 20080601
  2. MOBIC [Concomitant]
     Indication: ARTHRALGIA
     Dates: start: 20060101
  3. PREMPRO [Concomitant]
     Indication: HORMONE REPLACEMENT THERAPY
     Dates: start: 19800101

REACTIONS (1)
  - WEIGHT INCREASED [None]
